FAERS Safety Report 4983132-9 (Version None)
Quarter: 2006Q2

REPORT INFORMATION
  Report Type: 
  Country: None (occurrence: None)
  Receive Date: 20060419
  Receipt Date: 20060403
  Transmission Date: 20061013
  Serious: Yes (Other)
  Sender: FDA-Public Use
  Company Number: VNL_0122_2006

PATIENT
  Age: 68 Year
  Sex: Female

DRUGS (12)
  1. APO-GO [Suspect]
     Indication: PARKINSON'S DISEASE
     Dosage: 4 MG/HR INFUSION SC
     Route: 058
     Dates: start: 20050501
  2. MADOPAR [Concomitant]
  3. MADEPAR LT [Concomitant]
  4. MADOPAR DEPOT [Concomitant]
  5. PARKOTIL [Concomitant]
  6. ALMIRID [Concomitant]
  7. MIRTAZAPINE [Concomitant]
  8. FLUNITRAZEPAM [Concomitant]
  9. SEROQUEL [Concomitant]
  10. NEURONTIN [Concomitant]
  11. MOBIC [Concomitant]
  12. MOTILIUM [Concomitant]

REACTIONS (2)
  - ARTERIAL OCCLUSIVE DISEASE [None]
  - FATIGUE [None]
